FAERS Safety Report 16641497 (Version 1)
Quarter: 2019Q3

REPORT INFORMATION
  Report Type: Spontaneous
  Country: US (occurrence: US)
  Receive Date: 20190729
  Receipt Date: 20190729
  Transmission Date: 20191004
  Serious: Yes (Other)
  Sender: FDA-Public Use
  Company Number: US-SUN PHARMACEUTICAL INDUSTRIES LTD-2018R1-195290

PATIENT
  Age: 17 Year
  Sex: Female

DRUGS (1)
  1. CLINDAMYCIN. [Suspect]
     Active Substance: CLINDAMYCIN
     Indication: LYMPHADENITIS
     Dosage: 300 MILLIGRAM, TID
     Route: 065

REACTIONS (1)
  - Infectious mononucleosis [Unknown]
